FAERS Safety Report 13973031 (Version 3)
Quarter: 2017Q3

REPORT INFORMATION
  Report Type: Spontaneous
  Country: ES (occurrence: ES)
  Receive Date: 20170914
  Receipt Date: 20170926
  Transmission Date: 20171128
  Serious: Yes (Other)
  Sender: FDA-Public Use
  Company Number: ES-PFIZER INC-2017391426

PATIENT
  Age: 52 Year
  Sex: Female
  Weight: 77.8 kg

DRUGS (1)
  1. METHOTREXATE SODIUM. [Suspect]
     Active Substance: METHOTREXATE SODIUM
     Indication: RHEUMATOID ARTHRITIS
     Dosage: 2.5 4X/WEEK
     Route: 048
     Dates: start: 2016, end: 201612

REACTIONS (1)
  - Emphysema [Recovering/Resolving]

NARRATIVE: CASE EVENT DATE: 201612
